FAERS Safety Report 6884901-0 (Version None)
Quarter: 2010Q3

REPORT INFORMATION
  Report Type: 
  Country: None (occurrence: None)
  Receive Date: 20100729
  Receipt Date: 20080126
  Transmission Date: 20110219
  Serious: No
  Sender: FDA-Public Use
  Company Number: US-PFIZER INC-2007083276

PATIENT
  Age: 86 Year
  Sex: Male
  Weight: 77.11 kg

DRUGS (2)
  1. CELEBREX [Suspect]
     Indication: BACK PAIN
     Route: 048
  2. AZITHROMYCIN [Suspect]

REACTIONS (1)
  - TRANSIENT ACANTHOLYTIC DERMATOSIS [None]
